FAERS Safety Report 15779006 (Version 3)
Quarter: 2019Q4

REPORT INFORMATION
  Report Type: Spontaneous
  Country: US (occurrence: US)
  Receive Date: 20190101
  Receipt Date: 20191024
  Transmission Date: 20200122
  Serious: Yes (Other)
  Sender: FDA-Public Use
  Company Number: US-AUROBINDO-AUR-APL-2018-063183

PATIENT
  Age: 61 Year
  Sex: Female

DRUGS (2)
  1. ENTECAVIR TABLETS 0.5MG [Suspect]
     Active Substance: ENTECAVIR
     Indication: CHRONIC HEPATITIS B
     Dosage: RESTARTED ON DAILY ENTECAVIR
     Route: 048
  2. ENTECAVIR TABLETS 0.5MG [Suspect]
     Active Substance: ENTECAVIR
     Dosage: 0.5 MILLIGRAM (500 UG)
     Route: 065

REACTIONS (5)
  - Hypersensitivity [Recovered/Resolved]
  - Neuropathy peripheral [Recovered/Resolved]
  - Wrong technique in product usage process [Unknown]
  - Pharyngeal swelling [Recovered/Resolved]
  - Joint swelling [Recovered/Resolved]
